FAERS Safety Report 12090375 (Version 2)
Quarter: 2016Q2

REPORT INFORMATION
  Report Type: Spontaneous
  Country: US (occurrence: US)
  Receive Date: 20160218
  Receipt Date: 20160426
  Transmission Date: 20160815
  Serious: Yes (Life-Threatening, Hospitalization, Other)
  Sender: FDA-Public Use
  Company Number: US-PRINSTON PHARMACEUTICAL INC.-2016PRN00033

PATIENT
  Age: 31 Year
  Sex: Female
  Weight: 68.27 kg

DRUGS (12)
  1. RAPAMUNE [Suspect]
     Active Substance: SIROLIMUS
     Indication: PROPHYLAXIS AGAINST TRANSPLANT REJECTION
     Dosage: 3 MG, 1X/DAY
     Route: 048
     Dates: start: 20061011
  2. LIOTHYRONINE SODIUM. [Concomitant]
     Active Substance: LIOTHYRONINE SODIUM
     Dosage: 5 ?G, 1X/DAY
     Dates: start: 2000
  3. WARFARIN (TARO) [Suspect]
     Active Substance: WARFARIN SODIUM
     Indication: CEREBROVASCULAR ACCIDENT
     Dosage: 2.5 MG, 1X/DAY
     Route: 048
     Dates: start: 1998
  4. FOLIC ACID. [Concomitant]
     Active Substance: FOLIC ACID
     Dosage: UNK
     Dates: start: 20151010
  5. LEVOTHYROXINE. [Concomitant]
     Active Substance: LEVOTHYROXINE
     Dosage: 150 ?G, 1X/DAY
     Dates: start: 2000
  6. PREDNISONE. [Concomitant]
     Active Substance: PREDNISONE
     Dosage: 5 MG, 1X/DAY
     Dates: start: 2006
  7. LEVETIRACETAM. [Suspect]
     Active Substance: LEVETIRACETAM
     Indication: SEIZURE
     Dosage: 4 TABLETS, 2X/DAY
     Route: 048
     Dates: start: 2011, end: 20160105
  8. REVATIO [Suspect]
     Active Substance: SILDENAFIL CITRATE
     Indication: RAYNAUD^S PHENOMENON
     Dosage: 10 MG, 3X/DAY
     Route: 048
     Dates: start: 2009
  9. ESCITALOPRAM [Concomitant]
     Active Substance: ESCITALOPRAM OXALATE
     Dosage: 10 MG, 1X/DAY
     Dates: start: 2006
  10. LEVETIRACETAM. [Suspect]
     Active Substance: LEVETIRACETAM
     Dosage: 5 TABLETS, 2X/DAY
     Route: 048
     Dates: start: 20160110
  11. VIMPAT [Suspect]
     Active Substance: LACOSAMIDE
     Indication: SEIZURE
     Dosage: 275 MG, 2X/DAY
     Route: 048
     Dates: start: 2011, end: 201601
  12. VIMPAT [Suspect]
     Active Substance: LACOSAMIDE
     Dosage: UNK
     Dates: start: 20160113

REACTIONS (5)
  - Generalised tonic-clonic seizure [Recovered/Resolved]
  - International normalised ratio increased [Not Recovered/Not Resolved]
  - Eating disorder [Recovering/Resolving]
  - Dizziness [Recovering/Resolving]
  - Cardiac arrest [Recovered/Resolved]

NARRATIVE: CASE EVENT DATE: 20160106
